FAERS Safety Report 25247456 (Version 1)
Quarter: 2025Q2

REPORT INFORMATION
  Report Type: Spontaneous
  Country: DE (occurrence: DE)
  Receive Date: 20250428
  Receipt Date: 20250428
  Transmission Date: 20250717
  Serious: Yes (Hospitalization)
  Sender: RHYTHM PHARMACEUTICALS
  Company Number: DE-PPDUS-2024RHM000292

PATIENT
  Age: 7 Year
  Sex: Male

DRUGS (4)
  1. IMCIVREE [Suspect]
     Active Substance: SETMELANOTIDE
     Indication: Laurence-Moon-Bardet-Biedl syndrome
     Route: 065
     Dates: start: 20230601
  2. IMCIVREE [Suspect]
     Active Substance: SETMELANOTIDE
     Route: 065
  3. IMCIVREE [Suspect]
     Active Substance: SETMELANOTIDE
     Route: 065
  4. IMCIVREE [Suspect]
     Active Substance: SETMELANOTIDE
     Route: 065

REACTIONS (6)
  - Restlessness [Unknown]
  - Nail discolouration [Not Recovered/Not Resolved]
  - Nausea [Not Recovered/Not Resolved]
  - Vomiting [Not Recovered/Not Resolved]
  - Overdose [Recovered/Resolved]
  - Incorrect dose administered [Recovered/Resolved]
